FAERS Safety Report 16854894 (Version 1)
Quarter: 2019Q3

REPORT INFORMATION
  Report Type: Spontaneous
  Country: None (occurrence: US)
  Receive Date: 20190926
  Receipt Date: 20190926
  Transmission Date: 20191005
  Serious: Yes (Other)
  Sender: FDA-Public Use
  Company Number: US-BIO PRODUCTS LABORATORY LTD-2074930

PATIENT
  Age: 68 Year
  Sex: Male

DRUGS (22)
  1. CARVEDILOL. [Concomitant]
     Active Substance: CARVEDILOL
  2. GABAPENTIN. [Concomitant]
     Active Substance: GABAPENTIN
  3. METFORMIN [Concomitant]
     Active Substance: METFORMIN HYDROCHLORIDE
  4. POTASSIUM CHLORIDE. [Concomitant]
     Active Substance: POTASSIUM CHLORIDE
  5. VITAMIN B12 [Concomitant]
     Active Substance: CYANOCOBALAMIN
  6. V-B COMPLEX [Concomitant]
  7. CELECOXIB. [Concomitant]
     Active Substance: CELECOXIB
  8. DULOXETINE. [Concomitant]
     Active Substance: DULOXETINE
  9. FOLIC ACID. [Concomitant]
     Active Substance: FOLIC ACID
  10. KETOCONAZOLE. [Concomitant]
     Active Substance: KETOCONAZOLE
  11. LISINIPRIL [Concomitant]
     Active Substance: LISINOPRIL
  12. CITIRIZINE [Concomitant]
  13. VITAMIN D [Concomitant]
     Active Substance: VITAMIN D NOS
  14. FUROSEMIDE. [Concomitant]
     Active Substance: FUROSEMIDE
  15. LOPERIMIDE [Concomitant]
  16. OMEPRAZOLE. [Concomitant]
     Active Substance: OMEPRAZOLE
  17. V-E AND D ALFA NATURAL [Concomitant]
  18. DEXAMETHASONE. [Concomitant]
     Active Substance: DEXAMETHASONE
  19. ROSUVASTATIN. [Concomitant]
     Active Substance: ROSUVASTATIN
  20. GAMMAPLEX [Suspect]
     Active Substance: HUMAN IMMUNOGLOBULIN G
     Indication: CHRONIC INFLAMMATORY DEMYELINATING POLYRADICULONEUROPATHY
     Route: 042
     Dates: start: 20190910
  21. BRAFTOVI [Concomitant]
     Active Substance: ENCORAFENIB
  22. PROCHLORPERAXZINE [Concomitant]

REACTIONS (3)
  - Pruritus [Recovering/Resolving]
  - Dysphagia [Recovering/Resolving]
  - Off label use [Recovering/Resolving]

NARRATIVE: CASE EVENT DATE: 20190910
